FAERS Safety Report 15440648 (Version 1)
Quarter: 2018Q3

REPORT INFORMATION
  Report Type: Report from Study
  Country: US (occurrence: US)
  Receive Date: 20180928
  Receipt Date: 20180928
  Transmission Date: 20181010
  Serious: Yes (Other)
  Sender: FDA-Public Use
  Company Number: US-GILEAD-2018-0353091

PATIENT
  Age: 58 Year
  Sex: Female

DRUGS (3)
  1. UPTRAVI [Concomitant]
     Active Substance: SELEXIPAG
  2. LOSARTAN POTASSIUM. [Concomitant]
     Active Substance: LOSARTAN POTASSIUM
  3. AMBRISENTAN [Suspect]
     Active Substance: AMBRISENTAN
     Indication: PRODUCT USED FOR UNKNOWN INDICATION
     Dosage: 10 MG, QD
     Route: 065
     Dates: start: 20180713

REACTIONS (15)
  - Flushing [Not Recovered/Not Resolved]
  - Blood pressure increased [Not Recovered/Not Resolved]
  - Headache [Recovered/Resolved]
  - Rheumatoid arthritis [Unknown]
  - Pain in extremity [Not Recovered/Not Resolved]
  - Palpitations [Not Recovered/Not Resolved]
  - Feeling abnormal [Not Recovered/Not Resolved]
  - Back pain [Recovering/Resolving]
  - Pain in extremity [Recovered/Resolved]
  - Ill-defined disorder [Not Recovered/Not Resolved]
  - Pain [Recovering/Resolving]
  - Spinal pain [Not Recovered/Not Resolved]
  - Cough [Not Recovered/Not Resolved]
  - Neck pain [Not Recovered/Not Resolved]
  - Peripheral swelling [Unknown]
